FAERS Safety Report 7772327-7 (Version None)
Quarter: 2011Q3

REPORT INFORMATION
  Report Type: 
  Country: None (occurrence: None)
  Receive Date: 20110921
  Receipt Date: 20110921
  Transmission Date: 20111222
  Serious: Yes (Hospitalization)
  Sender: FDA-Public Use
  Company Number: None

PATIENT
  Sex: Male
  Weight: 18 kg

DRUGS (14)
  1. CYCLOPHOSPHAMIDE [Suspect]
     Dosage: 820 MG
  2. G-CSF (FILGRASTIM, AMGEN) [Suspect]
     Dosage: 80 MG
  3. MORPHINE [Concomitant]
  4. RANITIDINE [Concomitant]
  5. DACTINOMYCIN [Suspect]
     Dosage: .7MG
  6. FENTANYL [Concomitant]
  7. OXYCODONE [Concomitant]
  8. IRINOTECAN HCL [Suspect]
     Dosage: 35MG
  9. AMOXICILLIN [Concomitant]
  10. PROPOFOL [Concomitant]
  11. MESNA [Suspect]
     Dosage: 660MG
  12. VINCRISTINE SULFATE [Suspect]
     Dosage: 1 MG
  13. CEFEPIME [Concomitant]
  14. DEXAMETHASONE [Concomitant]

REACTIONS (6)
  - RESPIRATORY TRACT OEDEMA [None]
  - RESPIRATORY DISTRESS [None]
  - LOCAL SWELLING [None]
  - PNEUMOTHORAX [None]
  - STRIDOR [None]
  - SWELLING FACE [None]
